FAERS Safety Report 13540216 (Version 2)
Quarter: 2017Q2

REPORT INFORMATION
  Report Type: Spontaneous
  Country: DE (occurrence: DE)
  Receive Date: 20170512
  Receipt Date: 20170606
  Transmission Date: 20170830
  Serious: Yes (Hospitalization, Disabling)
  Sender: FDA-Public Use
  Company Number: PHHY2017DE067728

PATIENT
  Age: 73 Year
  Sex: Male
  Weight: 59.7 kg

DRUGS (1)
  1. GLIVEC [Suspect]
     Active Substance: IMATINIB MESYLATE
     Indication: GASTROINTESTINAL STROMAL CANCER
     Dosage: UNK
     Route: 065

REACTIONS (8)
  - Ischaemia [Recovered/Resolved with Sequelae]
  - Dehydration [Recovered/Resolved with Sequelae]
  - Diarrhoea [Recovering/Resolving]
  - Clostridium colitis [Recovering/Resolving]
  - Pleural effusion [Unknown]
  - Aspiration [Unknown]
  - Arterial occlusive disease [Recovered/Resolved with Sequelae]
  - Abdominal pain [Recovering/Resolving]

NARRATIVE: CASE EVENT DATE: 20141017
